FAERS Safety Report 20235912 (Version 1)
Quarter: 2021Q4

REPORT INFORMATION
  Report Type: Other
  Country: US (occurrence: US)
  Receive Date: 20211228
  Receipt Date: 20211228
  Transmission Date: 20220303
  Serious: No
  Sender: FDA-Public Use
  Company Number: US-ALEMBIC PHARMACUETICALS LIMITED-2021SCAL000463

PATIENT

DRUGS (3)
  1. DESVENLAFAXINE SUCCINATE [Suspect]
     Active Substance: DESVENLAFAXINE SUCCINATE
     Indication: Depression
     Dosage: 100 MILLIGRAM
     Route: 065
  2. ARMOUR THYROID [Concomitant]
     Active Substance: THYROID, PORCINE
     Indication: Product used for unknown indication
     Dosage: 30 MICROGRAM, QD
     Route: 065
  3. VITAMINS [Concomitant]
     Active Substance: VITAMINS
     Indication: Product used for unknown indication
     Dosage: UNK
     Route: 065

REACTIONS (14)
  - Abdominal discomfort [Unknown]
  - Influenza like illness [Unknown]
  - Feeling abnormal [Unknown]
  - Drug ineffective [Unknown]
  - Product substitution issue [Unknown]
  - Product dose omission issue [Unknown]
  - Depressed mood [Unknown]
  - Withdrawal syndrome [Unknown]
  - Dizziness [Unknown]
  - Mood altered [Unknown]
  - Depression [Unknown]
  - Memory impairment [Unknown]
  - Listless [Unknown]
  - Fatigue [Unknown]
